FAERS Safety Report 6148776-X (Version None)
Quarter: 2009Q2

REPORT INFORMATION
  Report Type: 
  Country: None (occurrence: None)
  Receive Date: 20090408
  Receipt Date: 20090401
  Transmission Date: 20091009
  Serious: Yes (Other)
  Sender: FDA-Public Use
  Company Number: GB-ELI_LILLY_AND_COMPANY-GB200904000616

PATIENT
  Sex: Male

DRUGS (2)
  1. OLANZAPINE [Suspect]
     Dates: start: 20070101
  2. MIRTAZAPINE [Concomitant]
     Dates: start: 20070101

REACTIONS (1)
  - HEPATOMEGALY [None]
